FAERS Safety Report 9376623 (Version 2)
Quarter: 2013Q3

REPORT INFORMATION
  Report Type: Spontaneous
  Country: US (occurrence: US)
  Receive Date: 20130701
  Receipt Date: 20130807
  Transmission Date: 20140515
  Serious: No
  Sender: FDA-Public Use
  Company Number: US-PFIZER INC-2013190501

PATIENT
  Age: 65 Year
  Sex: Female

DRUGS (4)
  1. INLYTA [Suspect]
     Indication: MALIGNANT URINARY TRACT NEOPLASM
     Dosage: 5 MG, 2X/DAY
     Route: 048
     Dates: start: 201301, end: 201306
  2. INLYTA [Suspect]
     Indication: RENAL CELL CARCINOMA
     Dosage: 5 MG, 2X/DAY
     Route: 048
     Dates: start: 20130401
  3. MORPHINE SULFATE [Concomitant]
     Indication: PAIN
     Dosage: UNK
  4. SYNTHROID [Concomitant]
     Indication: PAIN
     Dosage: UNK

REACTIONS (2)
  - Blister [Recovered/Resolved]
  - Stomatitis [Recovered/Resolved]
